FAERS Safety Report 12356711 (Version 1)
Quarter: 2016Q2

REPORT INFORMATION
  Report Type: Report from Study
  Country: CA (occurrence: CA)
  Receive Date: 20160511
  Receipt Date: 20160511
  Transmission Date: 20160815
  Serious: Yes (Other)
  Sender: FDA-Public Use
  Company Number: CA-BAYER-2016-084568

PATIENT
  Age: 46 Year
  Sex: Female

DRUGS (20)
  1. ADEMPAS [Suspect]
     Active Substance: RIOCIGUAT
     Dosage: 0.5 MG, TID
  2. ADEMPAS [Suspect]
     Active Substance: RIOCIGUAT
     Dosage: 1 MG, TID
  3. ADEMPAS [Suspect]
     Active Substance: RIOCIGUAT
     Dosage: 1.5 MG, TID
  4. LASIX [Concomitant]
     Active Substance: FUROSEMIDE
  5. STATEX [Concomitant]
     Active Substance: MORPHINE SULFATE
     Dosage: UNK UNK, PRN
  6. CALTRATE [CALCIUM CARBONATE,COLECALCIFEROL] [Concomitant]
  7. VITAMIN D [Concomitant]
     Active Substance: CHOLECALCIFEROL
  8. COLACE [Concomitant]
     Active Substance: DOCUSATE SODIUM
  9. ZOPLICONE [Concomitant]
     Active Substance: ZOPICLONE
  10. LYRICA [Concomitant]
     Active Substance: PREGABALIN
     Indication: HEADACHE
  11. FUROSEMIDE. [Concomitant]
     Active Substance: FUROSEMIDE
  12. QUININE [Concomitant]
     Active Substance: QUININE
  13. MORPHINE [Concomitant]
     Active Substance: MORPHINE
  14. OXYGEN. [Concomitant]
     Active Substance: OXYGEN
     Dosage: 2 LITRES/MIN
  15. ADEMPAS [Suspect]
     Active Substance: RIOCIGUAT
     Dosage: 2 MG, TID
  16. INNOHEP [Concomitant]
     Active Substance: TINZAPARIN SODIUM
  17. SYMBICORT [Concomitant]
     Active Substance: BUDESONIDE\FORMOTEROL FUMARATE DIHYDRATE
  18. SPIRONOLACTONE. [Concomitant]
     Active Substance: SPIRONOLACTONE
  19. ADEMPAS [Suspect]
     Active Substance: RIOCIGUAT
     Dosage: 2.5 MG, TID
  20. ALENDRONATE SODIUM. [Concomitant]
     Active Substance: ALENDRONATE SODIUM

REACTIONS (8)
  - Pancreatitis [None]
  - Constipation [None]
  - Cholecystectomy [None]
  - Vomiting [None]
  - Dyspepsia [None]
  - Hepatic cirrhosis [None]
  - Rectal haemorrhage [None]
  - Cholecystitis [None]
